FAERS Safety Report 15277439 (Version 2)
Quarter: 2018Q3

REPORT INFORMATION
  Report Type: Spontaneous
  Country: IT (occurrence: IT)
  Receive Date: 20180814
  Receipt Date: 20180907
  Transmission Date: 20181010
  Serious: Yes (Other)
  Sender: FDA-Public Use
  Company Number: PHHY2018IT070773

PATIENT
  Age: 60 Year
  Sex: Female

DRUGS (4)
  1. ACETYLSALICYLIC ACID [Suspect]
     Active Substance: ASPIRIN
     Indication: MEDICAL DEVICE IMPLANTATION
     Dosage: 100 MG, QD
     Route: 065
  2. ABCIXIMAB [Suspect]
     Active Substance: ABCIXIMAB
     Dosage: 0.25 MG/KG, UNK
     Route: 042
  3. TICLOPIDINE [Suspect]
     Active Substance: TICLOPIDINE
     Indication: MEDICAL DEVICE IMPLANTATION
     Dosage: 500 MG, QD
     Route: 065
  4. ABCIXIMAB [Suspect]
     Active Substance: ABCIXIMAB
     Indication: MEDICAL DEVICE IMPLANTATION
     Dosage: 1 OT, Q12H
     Route: 042

REACTIONS (3)
  - Haemorrhage [Unknown]
  - Product use in unapproved indication [Unknown]
  - Off label use [Unknown]
